FAERS Safety Report 6524983-9 (Version None)
Quarter: 2009Q4

REPORT INFORMATION
  Report Type: 
  Country: None (occurrence: None)
  Receive Date: 20091231
  Receipt Date: 20091231
  Transmission Date: 20100525
  Serious: Yes (Hospitalization)
  Sender: FDA-Public Use
  Company Number: None

PATIENT
  Age: 75 Year
  Sex: Female

DRUGS (1)
  1. REGULAR INSULIN (NOT A STUDY DRUG!) [Suspect]
     Indication: HYPERGLYCAEMIA
     Dosage: 10 UNITS SQ X 2
     Route: 058
     Dates: start: 20091221

REACTIONS (2)
  - BLOOD GLUCOSE DECREASED [None]
  - BLOOD GLUCOSE INCREASED [None]
